FAERS Safety Report 17567136 (Version 1)
Quarter: 2020Q1

REPORT INFORMATION
  Report Type: Report from Study
  Country: US (occurrence: US)
  Receive Date: 20200320
  Receipt Date: 20200320
  Transmission Date: 20200409
  Serious: Yes (Other)
  Sender: FDA-Public Use
  Company Number: NVSC2020US078285

PATIENT
  Age: 9 Year
  Sex: Male

DRUGS (3)
  1. KYMRIAH [Suspect]
     Active Substance: TISAGENLECLEUCEL
     Indication: B-CELL TYPE ACUTE LEUKAEMIA
     Dosage: UNK
     Route: 065
     Dates: start: 2019
  2. FLUDARABINE [Concomitant]
     Active Substance: FLUDARABINE PHOSPHATE
     Indication: PRODUCT USED FOR UNKNOWN INDICATION
     Dosage: UNK
     Route: 065
  3. CYCLOPHOSPHAMIDE. [Concomitant]
     Active Substance: CYCLOPHOSPHAMIDE
     Indication: PRODUCT USED FOR UNKNOWN INDICATION
     Dosage: UNK
     Route: 065

REACTIONS (19)
  - Cerebrovascular accident [Recovered/Resolved]
  - Tremor [Recovered/Resolved]
  - Nephropathy toxic [Unknown]
  - Cytopenia [Recovered/Resolved]
  - Pyrexia [Recovered/Resolved]
  - Brain oedema [Recovered/Resolved]
  - Seizure [Recovered/Resolved]
  - Pulmonary toxicity [Unknown]
  - Cytokine release syndrome [Recovered/Resolved]
  - Hypotension [Unknown]
  - Hypoxia [Unknown]
  - Depressed level of consciousness [Recovered/Resolved]
  - Aphasia [Recovered/Resolved]
  - Hemiparesis [Recovered/Resolved]
  - Hypogammaglobulinaemia [Recovered/Resolved]
  - Hepatotoxicity [Unknown]
  - Leukoencephalopathy [Recovered/Resolved]
  - Cardiotoxicity [Unknown]
  - Neurotoxicity [Recovered/Resolved]
